FAERS Safety Report 12135244 (Version 3)
Quarter: 2016Q3

REPORT INFORMATION
  Report Type: Report from Study
  Country: US (occurrence: US)
  Receive Date: 20160301
  Receipt Date: 20160809
  Transmission Date: 20161109
  Serious: Yes (Hospitalization, Other)
  Sender: FDA-Public Use
  Company Number: US-BRISTOL-MYERS SQUIBB COMPANY-BMS-2016-012361

PATIENT
  Age: 45 Year
  Sex: Female

DRUGS (5)
  1. IPILIMUMAB [Suspect]
     Active Substance: IPILIMUMAB
     Dosage: 3 MG/KG, UNK
     Route: 065
     Dates: start: 20151125
  2. FLUDARABINE PHOSPHATE. [Suspect]
     Active Substance: FLUDARABINE PHOSPHATE
     Indication: METASTATIC MALIGNANT MELANOMA
     Dosage: 25 MG/M2, QD
     Route: 065
     Dates: start: 20151223, end: 20151227
  3. IPILIMUMAB [Suspect]
     Active Substance: IPILIMUMAB
     Indication: METASTATIC MALIGNANT MELANOMA
     Dosage: 3 MG/KG, UNK
     Route: 065
     Dates: start: 20151104
  4. INTERLEUKIN-2 [Suspect]
     Active Substance: ALDESLEUKIN
     Indication: METASTATIC MALIGNANT MELANOMA
     Dosage: 5 UNK, UNK
     Route: 065
     Dates: start: 20151229
  5. CYCLOPHOSPHAMIDE. [Suspect]
     Active Substance: CYCLOPHOSPHAMIDE
     Indication: METASTATIC MALIGNANT MELANOMA
     Dosage: 60 MG/KG, QD
     Route: 065
     Dates: start: 20151221, end: 20151222

REACTIONS (4)
  - Dyspnoea [Recovered/Resolved]
  - Pulmonary embolism [Unknown]
  - Non-cardiac chest pain [Recovered/Resolved]
  - Vascular access complication [Recovered/Resolved]

NARRATIVE: CASE EVENT DATE: 20160210
